FAERS Safety Report 11791820 (Version 3)
Quarter: 2016Q1

REPORT INFORMATION
  Report Type: Spontaneous
  Country: CA (occurrence: CA)
  Receive Date: 20151201
  Receipt Date: 20160122
  Transmission Date: 20160525
  Serious: Yes (Hospitalization, Other)
  Sender: FDA-Public Use
  Company Number: CA-PFIZER INC-2015327832

PATIENT
  Age: 83 Year
  Sex: Female

DRUGS (3)
  1. METHOTREXATE [Concomitant]
     Active Substance: METHOTREXATE
     Dosage: UNK
  2. XELJANZ [Suspect]
     Active Substance: TOFACITINIB CITRATE
     Indication: RHEUMATOID ARTHRITIS
     Dosage: 5 MG, 1X/DAY
     Route: 048
     Dates: start: 20150828
  3. XELJANZ [Suspect]
     Active Substance: TOFACITINIB CITRATE
     Dosage: 5 MG, EVERY 3RD DAY
     Route: 048
     Dates: start: 20150924, end: 20151115

REACTIONS (8)
  - Oropharyngeal pain [Unknown]
  - Staphylococcal bacteraemia [Recovered/Resolved]
  - Mobility decreased [Recovering/Resolving]
  - Muscular weakness [Recovering/Resolving]
  - Coating in mouth [Unknown]
  - Tremor [Unknown]
  - Facial paralysis [Recovered/Resolved]
  - Dysgeusia [Recovered/Resolved]

NARRATIVE: CASE EVENT DATE: 20151102
